FAERS Safety Report 17348405 (Version 1)
Quarter: 2020Q1

REPORT INFORMATION
  Report Type: Report from Study
  Country: US (occurrence: US)
  Receive Date: 20200129
  Receipt Date: 20200129
  Transmission Date: 20200409
  Serious: No
  Sender: FDA-Public Use
  Company Number: US-EXELIXIS-CABO-19023904

PATIENT
  Sex: Male

DRUGS (1)
  1. CABOMETYX [Suspect]
     Active Substance: CABOZANTINIB S-MALATE
     Indication: RENAL CANCER
     Dosage: 60 MG

REACTIONS (6)
  - Flatulence [Unknown]
  - Fatigue [Unknown]
  - Malignant neoplasm progression [Unknown]
  - Nausea [Unknown]
  - Skin discolouration [Unknown]
  - Contusion [Unknown]
